FAERS Safety Report 19785130 (Version 3)
Quarter: 2021Q4

REPORT INFORMATION
  Report Type: Report from Study
  Country: CA (occurrence: CA)
  Receive Date: 20210903
  Receipt Date: 20211224
  Transmission Date: 20220303
  Serious: Yes (Other)
  Sender: FDA-Public Use
  Company Number: CA-JNJFOC-20210751850

PATIENT
  Age: 48 Year
  Sex: Female
  Weight: 115.2 kg

DRUGS (1)
  1. REMICADE [Suspect]
     Active Substance: INFLIXIMAB
     Indication: Crohn^s disease
     Dosage: ON 2-FEB-2021, DOSE ROUNDED UP TO 600MG Q8W TO AVOID VIAL WASTAGE, FOLLOWED BY RECEIVED ON 10-FEB-20
     Route: 042
     Dates: start: 20210202

REACTIONS (2)
  - Transient ischaemic attack [Unknown]
  - Herpes zoster [Recovered/Resolved]

NARRATIVE: CASE EVENT DATE: 20210718
